FAERS Safety Report 9347784 (Version 2)
Quarter: 2014Q1

REPORT INFORMATION
  Report Type: Spontaneous
  Country: US (occurrence: US)
  Receive Date: 20130614
  Receipt Date: 20140106
  Transmission Date: 20141002
  Serious: No
  Sender: FDA-Public Use
  Company Number: US-PFIZER INC-2013176950

PATIENT
  Age: 73 Year
  Sex: Female
  Weight: 72.56 kg

DRUGS (4)
  1. TOVIAZ [Suspect]
     Indication: URINARY INCONTINENCE
     Dosage: 4 MG, UNK
     Dates: start: 2013
  2. TOVIAZ [Suspect]
     Dosage: 8 MG, DAILY
     Dates: start: 2013
  3. ALENDRONATE SODIUM [Concomitant]
     Indication: BONE DISORDER
     Dosage: 70 MG, WEEKLY
  4. CLONIDINE [Concomitant]
     Indication: BLOOD PRESSURE
     Dosage: 0.2 MG, WEEKLY

REACTIONS (4)
  - Throat irritation [Recovered/Resolved]
  - Constipation [Recovered/Resolved]
  - Dry mouth [Unknown]
  - Dry throat [Recovered/Resolved]
